FAERS Safety Report 9243432 (Version 1)
Quarter: 2013Q2

REPORT INFORMATION
  Report Type: Spontaneous
  Country: US (occurrence: US)
  Receive Date: 20130421
  Receipt Date: 20130421
  Transmission Date: 20140414
  Serious: No
  Sender: FDA-Public Use
  Company Number: US-009507513-1304USA009496

PATIENT
  Age: 64 Year
  Sex: Female

DRUGS (1)
  1. NASONEX [Suspect]
     Indication: SINUSITIS
     Dosage: 50 MICROGRAM, TWO SPRAYS IN EACH NOSTRIL ONCE A DAY
     Route: 045
     Dates: start: 20081117

REACTIONS (1)
  - Increased upper airway secretion [Recovered/Resolved]
